FAERS Safety Report 20411358 (Version 1)
Quarter: 2022Q1

REPORT INFORMATION
  Report Type: Spontaneous
  Country: GB (occurrence: GB)
  Receive Date: 20220201
  Receipt Date: 20220201
  Transmission Date: 20220423
  Serious: Yes (Other)
  Sender: FDA-Public Use
  Company Number: GB-VERTEX PHARMACEUTICALS-2020-019618

PATIENT
  Sex: Female

DRUGS (2)
  1. ELEXACAFTOR\IVACAFTOR\TEZACAFTOR [Suspect]
     Active Substance: ELEXACAFTOR\IVACAFTOR\TEZACAFTOR
     Indication: Cystic fibrosis
     Dosage: 75MG IVACAFTOR/50MG TEZACAFTOR/100G ELEXAVAFTOR, FREQ. UNK.
     Route: 048
     Dates: start: 2021
  2. KALYDECO [Suspect]
     Active Substance: IVACAFTOR
     Indication: Cystic fibrosis
     Dosage: 150 MG IVA, QD
     Route: 048
     Dates: start: 2021, end: 2022

REACTIONS (6)
  - Haemoptysis [Unknown]
  - Sputum discoloured [Unknown]
  - Sputum increased [Unknown]
  - Suicide threat [Not Recovered/Not Resolved]
  - Mental disorder [Not Recovered/Not Resolved]
  - Ocular icterus [Not Recovered/Not Resolved]
